FAERS Safety Report 25035375 (Version 1)
Quarter: 2025Q1

REPORT INFORMATION
  Report Type: Spontaneous
  Country: SE (occurrence: SE)
  Receive Date: 20250304
  Receipt Date: 20250304
  Transmission Date: 20250409
  Serious: Yes (Life-Threatening, Hospitalization, Disabling)
  Sender: MERCK SHARP & DOHME LLC
  Company Number: None

PATIENT
  Age: 67 Year
  Sex: Female

DRUGS (6)
  1. KEYTRUDA [Suspect]
     Active Substance: PEMBROLIZUMAB
     Indication: Lung neoplasm malignant
     Dosage: DOSE DESCRIPTION : 400MG EVERY 6 WEEKS?DAILY DOSE : 9.6 MILLIGRAM?CONCENTRATION: 25 MILLIGRAM PER...
     Route: 042
     Dates: start: 20220318, end: 20240227
  2. KEYTRUDA [Suspect]
     Active Substance: PEMBROLIZUMAB
     Indication: Lung neoplasm malignant
     Dosage: DOSE DESCRIPTION : 400MG EVERY 6 WEEKS?DAILY DOSE : 9.6 MILLIGRAM?CONCENTRATION: 25 MILLIGRAM PER...
     Route: 042
     Dates: start: 20220318, end: 20240227
  3. ESTRADIOL [Concomitant]
     Active Substance: ESTRADIOL
     Route: 067
  4. XGEVA [Concomitant]
     Active Substance: DENOSUMAB
     Route: 058
     Dates: start: 20220311
  5. FLUCONAZOLE [Concomitant]
     Active Substance: FLUCONAZOLE
     Dosage: DOSE DESCRIPTION : 1X1?DAILY DOSE : 100 MILLIGRAM
     Route: 048
     Dates: start: 20231207
  6. CALCIUM CARBONATE\CHOLECALCIFEROL [Concomitant]
     Active Substance: CALCIUM CARBONATE\CHOLECALCIFEROL
     Dosage: DOSE DESCRIPTION : 1X1?DAILY DOSE : 1 DOSAGE FORM
     Route: 048
     Dates: start: 20220311

REACTIONS (1)
  - Type 1 diabetes mellitus [Recovered/Resolved with Sequelae]

NARRATIVE: CASE EVENT DATE: 20231221
